FAERS Safety Report 6169811-9 (Version None)
Quarter: 2009Q2

REPORT INFORMATION
  Report Type: 
  Country: None (occurrence: None)
  Receive Date: 20090428
  Receipt Date: 20081029
  Transmission Date: 20091009
  Serious: No
  Sender: FDA-Public Use
  Company Number: US-AMGEN-US316137

PATIENT
  Sex: Female

DRUGS (9)
  1. SENSIPAR [Suspect]
     Indication: HYPERPARATHYROIDISM SECONDARY
     Route: 065
  2. ZOCOR [Concomitant]
     Route: 065
  3. DIOVAN [Concomitant]
     Route: 065
  4. MINOXIDIL [Concomitant]
     Route: 065
  5. NEXIUM [Concomitant]
     Route: 065
  6. PLAVIX [Concomitant]
     Route: 065
  7. TOPROL-XL [Concomitant]
     Route: 065
  8. NEPHRO-VITE [Concomitant]
     Route: 065
  9. RENAGEL [Concomitant]
     Route: 065

REACTIONS (1)
  - COUGH [None]
